FAERS Safety Report 8603659-8 (Version None)
Quarter: 2012Q3

REPORT INFORMATION
  Report Type: 
  Country: None (occurrence: None)
  Receive Date: 20120817
  Receipt Date: 20120808
  Transmission Date: 20120928
  Serious: Yes (Other)
  Sender: FDA-Public Use
  Company Number: US-ASTRAZENECA-2012SE31090

PATIENT
  Age: 58 Year
  Sex: Male

DRUGS (2)
  1. SEROQUEL XR [Suspect]
     Route: 048
  2. DEPAKOTE [Suspect]
     Route: 065

REACTIONS (7)
  - HEPATITIS C [None]
  - BLADDER NEOPLASM [None]
  - URETHRAL NEOPLASM [None]
  - LIVER INJURY [None]
  - CEREBROVASCULAR ACCIDENT [None]
  - RED BLOOD CELL COUNT DECREASED [None]
  - ADVERSE EVENT [None]
